FAERS Safety Report 5324040-3 (Version None)
Quarter: 2007Q2

REPORT INFORMATION
  Report Type: 
  Country: None (occurrence: None)
  Receive Date: 20070514
  Receipt Date: 20070504
  Transmission Date: 20071010
  Serious: Yes (Hospitalization)
  Sender: FDA-Public Use
  Company Number: US-ELI_LILLY_AND_COMPANY-US200703001225

PATIENT
  Age: 77 Year
  Sex: Male
  Weight: 90.249 kg

DRUGS (17)
  1. AVANDIA [Concomitant]
     Indication: DIABETES MELLITUS
     Dates: start: 20050512
  2. GLUCOPHAGE [Concomitant]
     Indication: DIABETES MELLITUS
     Dates: start: 20050512
  3. SOMATROPIN [Suspect]
     Indication: HYPOPITUITARISM
     Dosage: 2 UG, DAILY (1/D)
     Route: 058
     Dates: start: 19971219, end: 19990112
  4. SOMATROPIN [Suspect]
     Dosage: UNK, DAILY (1/D)
     Route: 058
     Dates: start: 19990113, end: 19990824
  5. SOMATROPIN [Suspect]
     Dosage: 10 D/F, DAILY (1/D)
     Route: 058
     Dates: start: 19990824, end: 20000725
  6. SOMATROPIN [Suspect]
     Dosage: 8 D/F, DAILY (1/D)
     Route: 058
     Dates: start: 20000725, end: 20060701
  7. ALLEGRA [Concomitant]
     Indication: RHINITIS ALLERGIC
     Dosage: UNK, UNK
     Dates: start: 20000725
  8. PREVACID [Concomitant]
     Indication: GASTROOESOPHAGEAL REFLUX DISEASE
     Dosage: UNK, UNK
     Dates: start: 19970505
  9. DOXAZOSIN MESYLATE [Concomitant]
     Indication: HYPERTENSION
     Dosage: UNK, UNK
     Dates: start: 19970618
  10. SYNTHROID [Concomitant]
     Indication: HYPOTHYROIDISM
     Dosage: UNK, UNK
     Dates: start: 20030512
  11. ARTHROTEC [Concomitant]
     Indication: INFLAMMATION
  12. VYTORIN [Concomitant]
     Indication: DYSLIPIDAEMIA
     Dosage: UNK, UNK
     Dates: start: 20051117
  13. ZYRTEC [Concomitant]
     Indication: RHINITIS ALLERGIC
     Dosage: UNK, UNK
  14. TESTOSTERONE [Concomitant]
     Indication: HYPOGONADISM
     Dosage: UNK, UNK
     Dates: start: 19970505
  15. ASPIRIN [Concomitant]
     Indication: PROPHYLAXIS
     Dosage: UNK, UNK
     Dates: start: 20051117
  16. HYDROCORTISONE [Concomitant]
     Indication: ADRENAL INSUFFICIENCY
     Dosage: UNK, UNK
     Dates: start: 19970505
  17. BACTRIM [Concomitant]
     Indication: URINARY TRACT INFECTION
     Dosage: UNK, UNK
     Dates: start: 20020725

REACTIONS (3)
  - FALL [None]
  - INTERVERTEBRAL DISC PROTRUSION [None]
  - RADICULOPATHY [None]
